FAERS Safety Report 21568106 (Version 2)
Quarter: 2022Q4

REPORT INFORMATION
  Report Type: Spontaneous
  Country: JP (occurrence: JP)
  Receive Date: 20221108
  Receipt Date: 20221125
  Transmission Date: 20230112
  Serious: Yes (Life-Threatening, Hospitalization)
  Sender: FDA-Public Use
  Company Number: JP-TEVA-2022-JP-2824343

PATIENT
  Age: 16 Year
  Sex: Male

DRUGS (29)
  1. PREDNISOLONE [Suspect]
     Active Substance: PREDNISOLONE
     Indication: Precursor T-lymphoblastic lymphoma/leukaemia
     Dosage: INITIALLY ON DAY 1 TO 5 , 60 MG/M2
     Route: 065
  2. PREDNISOLONE [Suspect]
     Active Substance: PREDNISOLONE
     Dosage: FROM DAY 1-5 AFTER 14WEEKS AND 3DAYS OF INITIAL TREATMENT , 90 MG/M2
     Route: 065
  3. METHOTREXATE [Suspect]
     Active Substance: METHOTREXATE
     Indication: Precursor T-lymphoblastic lymphoma/leukaemia
     Dosage: 15MG/BODY, RECEIVED ON DAY 8 AND 22 OF TREATMENT INITIATION AND ON DAY 1 AND 8 AFTER 5WEEKS
     Route: 037
  4. METHOTREXATE [Suspect]
     Active Substance: METHOTREXATE
     Dosage: RECEIVED ON DAY1 AND 8 AFTER 10WEEKS AND 1DAY OF INITIAL TREATMENT. , 300 MG/M2
     Route: 065
  5. METHOTREXATE [Suspect]
     Active Substance: METHOTREXATE
     Dosage: 15MG/BODY, RECEIVED ON DAY 2 AND 9 AFTER 10WEEKS AND 1DAYS OF INITIAL TREATMENT.
     Route: 037
  6. DOXORUBICIN [Suspect]
     Active Substance: DOXORUBICIN
     Indication: Precursor T-lymphoblastic lymphoma/leukaemia
     Dosage: INITIALLY ON DAY 1 AS INITIAL TREATMENT , 50 MG/M2
     Route: 065
  7. DOXORUBICIN [Suspect]
     Active Substance: DOXORUBICIN
     Dosage: RECEIVED ON DAY 1AND 15 AFTER 18WEEKS AND 6DAYS OF INITIAL TREATMENT , 40 MG/M2
     Route: 065
  8. DOXORUBICIN [Suspect]
     Active Substance: DOXORUBICIN
     Dosage: RECEIVED ON DAY 2 AND 16 AFTER 18WEEKS AND 6DAYS OF INITIAL TREATMENT , 35 MG/M2
     Route: 065
  9. VINCRISTINE [Suspect]
     Active Substance: VINCRISTINE
     Indication: Precursor T-lymphoblastic lymphoma/leukaemia
     Dosage: 2 MG/BODY ON DAY 1, 8, 14, 22 AND 29 OF TREATMENT INITIATION AND ON DAY 1, 8, 15 AND 22 AFTER 14WEEK
     Route: 065
  10. ASPARAGINASE [Suspect]
     Active Substance: ASPARAGINASE
     Indication: Precursor T-lymphoblastic lymphoma/leukaemia
     Dosage: 6,000 U/M2 ON DAY 8, 10, 12, 14, 16, 18, 20 AND 22 OF TREATMENT INITIATION
     Route: 065
  11. ASPARAGINASE [Suspect]
     Active Substance: ASPARAGINASE
     Dosage: 5000 U/M2 ON DAY 8, 10 AND 12 AFTER 14WEEKS AND 3DAYS OF INITIAL TREATMENT
     Route: 065
  12. PIRARUBICIN HYDROCHLORIDE [Suspect]
     Active Substance: PIRARUBICIN HYDROCHLORIDE
     Indication: Precursor T-lymphoblastic lymphoma/leukaemia
     Dosage: ON DAY 1 AND 2 AFTER 5WEEKS AND 3DAYS OF INITIAL TREATMENT , 25 MG/M2
     Route: 065
  13. CYTARABINE [Suspect]
     Active Substance: CYTARABINE
     Indication: Precursor T-lymphoblastic lymphoma/leukaemia
     Dosage: 40 MG/BODY ON DAY 8 AND 22 OF TREATMENT INITIATION AND ON DAY1 AND 8 AFTER 5WEEKS AND 3DAYS AND TO D
     Route: 037
  14. CYTARABINE [Suspect]
     Active Substance: CYTARABINE
     Dosage: RECEIVED ON DAY1-6 AND ON DAY 8-13 AFTER 5WEEKS AND 3DAYS OF INITIAL TREATMENT , 75 MG/M2
     Route: 065
  15. MERCAPTOPURINE [Suspect]
     Active Substance: MERCAPTOPURINE
     Indication: Precursor T-lymphoblastic lymphoma/leukaemia
     Dosage: RECEIVED ON DAY 1-14 AFTER 5WEEKS AND 3DAYS OF INITIAL TREATMENT , 50 MG/M2
     Route: 065
  16. CYCLOPHOSPHAMIDE [Suspect]
     Active Substance: CYCLOPHOSPHAMIDE
     Indication: Precursor T-lymphoblastic lymphoma/leukaemia
     Dosage: RECEIVED ON DAY1 AS INITIAL TREATMENT AND ON DAY 1 AND 8 AFTER 5WEEKS AND 3DAYS AND THEN ON DAY 1 AN
     Route: 065
  17. CYCLOPHOSPHAMIDE [Suspect]
     Active Substance: CYCLOPHOSPHAMIDE
     Dosage: RECEIVED ON DAY 15-16 AFTER 14WEEKS AND 3DAYS AND ON DAY 1, 2 AND 15 AFTER 18WEEKS AND 6DAYS OF INIT
     Route: 065
  18. CYCLOPHOSPHAMIDE [Suspect]
     Active Substance: CYCLOPHOSPHAMIDE
     Dosage: RECEIVED ON DAY 7 AND 8 AFTER 22WEEKS OF INITIAL TREATMENT , 60 MG/KG
     Route: 065
  19. DAUNORUBICIN [Suspect]
     Active Substance: DAUNORUBICIN
     Indication: Precursor T-lymphoblastic lymphoma/leukaemia
     Dosage: RECEIVED ON DAY1 AND 2 AFTER 14WEEKS AND 3DAYS OF INITIAL TREATMENT , 50 MG/M2
     Route: 065
  20. DAUNORUBICIN [Suspect]
     Active Substance: DAUNORUBICIN
     Dosage: RECEIVED ON DAY 15-16 AFTER 14WEEKS AND 3DAYS OF INITIAL TREATMENT , 30 MG/M2
     Route: 065
  21. ETOPOSIDE [Suspect]
     Active Substance: ETOPOSIDE
     Indication: Precursor T-lymphoblastic lymphoma/leukaemia
     Dosage: RECEIVED ON DAY17-19 AFTER 14WEEKS AND 3DAYS OF INITIAL TREATMENT , 100 MG/M2
     Route: 065
  22. ETOPOSIDE [Suspect]
     Active Substance: ETOPOSIDE
     Dosage: RECEIVED ON DAY 9 AND 10 AFTER 22WEEKS OF TREATMENT INITIATION , 15 MG/M2
     Route: 065
  23. DEXAMETHASONE [Suspect]
     Active Substance: DEXAMETHASONE
     Indication: Precursor T-lymphoblastic lymphoma/leukaemia
     Dosage: RECEIVED 3.3 MG/BODY ON DAY 8 AND 22 AS INITIAL TREATMENT AND ON DAY1 AND 8 AFTER 5WEEKS AND 3 DAYS
     Route: 037
  24. DOBUTAMINE [Suspect]
     Active Substance: DOBUTAMINE HYDROCHLORIDE
     Indication: Cardiac failure acute
     Route: 065
  25. MILRINONE [Suspect]
     Active Substance: MILRINONE
     Indication: Cardiac failure acute
     Route: 065
  26. TACROLIMUS [Concomitant]
     Active Substance: TACROLIMUS
     Indication: Immunosuppressant drug therapy
     Dosage: CONTINUOUS INTRAVENOUS
     Route: 042
  27. VANCOMYCIN [Concomitant]
     Active Substance: VANCOMYCIN
     Indication: Septic shock
     Dosage: CONTINUOUS INTRAVENOUS
     Route: 042
  28. VANCOMYCIN [Concomitant]
     Active Substance: VANCOMYCIN
     Indication: Bacterial infection
  29. MEROPENEM [Concomitant]
     Active Substance: MEROPENEM
     Indication: Antibiotic therapy
     Route: 065

REACTIONS (8)
  - Drug ineffective [Unknown]
  - Cardiac failure acute [Recovering/Resolving]
  - Cardiac failure chronic [Recovering/Resolving]
  - Pulmonary haemorrhage [Unknown]
  - Pneumothorax [Unknown]
  - Hepatotoxicity [Unknown]
  - Tachycardia [Recovering/Resolving]
  - Condition aggravated [Recovering/Resolving]
